FAERS Safety Report 8321491-X (Version None)
Quarter: 2012Q2

REPORT INFORMATION
  Report Type: 
  Country: None (occurrence: None)
  Receive Date: 20120430
  Receipt Date: 20120430
  Transmission Date: 20120825
  Serious: Yes (Other)
  Sender: FDA-Public Use
  Company Number: None

PATIENT
  Age: 40 Year
  Sex: Female
  Weight: 47.627 kg

DRUGS (1)
  1. SINGULAIR [Suspect]
     Indication: ABDOMINAL PAIN UPPER
     Dosage: 10 MG
     Route: 048
     Dates: start: 20120427, end: 20120427

REACTIONS (4)
  - FEELING ABNORMAL [None]
  - LETHARGY [None]
  - HEADACHE [None]
  - ABDOMINAL PAIN UPPER [None]
